FAERS Safety Report 11070341 (Version 4)
Quarter: 2015Q3

REPORT INFORMATION
  Report Type: Spontaneous
  Country: DE (occurrence: DE)
  Receive Date: 20150427
  Receipt Date: 20150713
  Transmission Date: 20151125
  Serious: Yes (Life-Threatening, Hospitalization, Disabling, Other)
  Sender: FDA-Public Use
  Company Number: GXKR2015DE002149

PATIENT
  Age: 74 Year
  Sex: Male

DRUGS (4)
  1. AMOXI 1A PHARMA [Suspect]
     Active Substance: AMOXICILLIN
     Indication: DENTAL OPERATION
     Dosage: 1000 MG, UKN
     Route: 048
     Dates: start: 201306
  2. ASPIRIN. [Concomitant]
     Active Substance: ASPIRIN
     Indication: PRODUCT USED FOR UNKNOWN INDICATION
     Dosage: 100 MG, QD
     Route: 048
  3. AMOXICILLIN. [Suspect]
     Active Substance: AMOXICILLIN
     Indication: DENTAL OPERATION
     Dosage: 1500 MG, QD
     Route: 048
     Dates: start: 20130513, end: 20130525
  4. ATACAND PLUS [Concomitant]
     Active Substance: CANDESARTAN CILEXETIL\HYDROCHLOROTHIAZIDE
     Indication: PRODUCT USED FOR UNKNOWN INDICATION
     Dosage: 0.5 DF, QD
     Route: 048
     Dates: end: 20130729

REACTIONS (19)
  - Antinuclear antibody positive [Unknown]
  - Skin discolouration [Not Recovered/Not Resolved]
  - Urticaria [Recovered/Resolved]
  - Muscular weakness [Not Recovered/Not Resolved]
  - Arthralgia [Unknown]
  - Alveolitis [Unknown]
  - Cardiomyopathy [Unknown]
  - Herpes virus infection [Unknown]
  - Dermatomyositis [Not Recovered/Not Resolved]
  - Myalgia [Unknown]
  - Raynaud^s phenomenon [Not Recovered/Not Resolved]
  - Oral candidiasis [Unknown]
  - Viral infection [Not Recovered/Not Resolved]
  - Blood creatine phosphokinase increased [Recovering/Resolving]
  - Erectile dysfunction [Unknown]
  - Weight decreased [Recovering/Resolving]
  - Asthenia [Unknown]
  - Depression [Unknown]
  - Bacterial disease carrier [Unknown]

NARRATIVE: CASE EVENT DATE: 201306
